FAERS Safety Report 13950411 (Version 4)
Quarter: 2018Q1

REPORT INFORMATION
  Report Type: Spontaneous
  Country: BE (occurrence: BE)
  Receive Date: 20170908
  Receipt Date: 20180306
  Transmission Date: 20180508
  Serious: Yes (Death, Life-Threatening, Hospitalization, Other)
  Sender: FDA-Public Use
  Company Number: BE-BRISTOL-MYERS SQUIBB COMPANY-BMS-2017-079014

PATIENT
  Age: 52 Year
  Sex: Male

DRUGS (3)
  1. COVERSYL                           /00790702/ [Concomitant]
     Active Substance: PERINDOPRIL
     Indication: PRODUCT USED FOR UNKNOWN INDICATION
     Route: 065
  2. PULMICORT TURBUHALER [Concomitant]
     Active Substance: BUDESONIDE
     Indication: PRODUCT USED FOR UNKNOWN INDICATION
     Route: 065
  3. OPDIVO [Suspect]
     Active Substance: NIVOLUMAB
     Indication: HEAD AND NECK CANCER
     Dosage: UNAVAILABLE
     Route: 065
     Dates: start: 20170602, end: 20170811

REACTIONS (8)
  - Acute respiratory distress syndrome [Fatal]
  - Pneumonitis [Fatal]
  - Lung infiltration [Recovering/Resolving]
  - Dyspnoea [Unknown]
  - Infection [Fatal]
  - Laryngeal oedema [Unknown]
  - Myocardial infarction [Fatal]
  - Antinuclear antibody increased [Unknown]

NARRATIVE: CASE EVENT DATE: 20170918
